FAERS Safety Report 24086074 (Version 2)
Quarter: 2024Q4

REPORT INFORMATION
  Report Type: Report from Study
  Country: US (occurrence: US)
  Receive Date: 20240712
  Receipt Date: 20241005
  Transmission Date: 20250114
  Serious: Yes (Disabling)
  Sender: NOVARTIS
  Company Number: US-002147023-NVSC2024US141734

PATIENT
  Age: 61 Year
  Sex: Female

DRUGS (1)
  1. COSENTYX [Suspect]
     Active Substance: SECUKINUMAB
     Indication: Psoriasis
     Dosage: 1 DOSAGE FORM, QMO
     Route: 058

REACTIONS (2)
  - Rheumatoid arthritis [Not Recovered/Not Resolved]
  - Incorrect dose administered [Unknown]

NARRATIVE: CASE EVENT DATE: 20240522
